FAERS Safety Report 8390091-8 (Version None)
Quarter: 2012Q2

REPORT INFORMATION
  Report Type: 
  Country: None (occurrence: None)
  Receive Date: 20120529
  Receipt Date: 20120517
  Transmission Date: 20120825
  Serious: Yes (Other)
  Sender: FDA-Public Use
  Company Number: AU-JNJFOC-20111210475

PATIENT
  Sex: Male

DRUGS (9)
  1. STELARA [Suspect]
     Route: 058
     Dates: start: 20101120, end: 20101120
  2. STELARA [Suspect]
     Indication: PSORIASIS
     Route: 058
     Dates: start: 20101015, end: 20101015
  3. IBRUPROFEN [Concomitant]
  4. STELARA [Suspect]
     Route: 058
     Dates: start: 20100917, end: 20100917
  5. STELARA [Suspect]
     Route: 058
     Dates: start: 20110401, end: 20110401
  6. STELARA [Suspect]
     Dosage: WEEK 64
     Route: 058
     Dates: start: 20120130, end: 20120130
  7. STELARA [Suspect]
     Route: 058
     Dates: start: 20111107, end: 20111107
  8. IRBESARTAN AND HYDROCHLOROTHIAZIDE [Concomitant]
  9. STELARA [Suspect]
     Route: 058
     Dates: start: 20110624, end: 20110624

REACTIONS (3)
  - PSORIATIC ARTHROPATHY [None]
  - INAPPROPRIATE SCHEDULE OF DRUG ADMINISTRATION [None]
  - CONDITION AGGRAVATED [None]
